FAERS Safety Report 21433497 (Version 1)
Quarter: 2022Q4

REPORT INFORMATION
  Report Type: Spontaneous
  Country: None (occurrence: BH)
  Receive Date: 20221010
  Receipt Date: 20221010
  Transmission Date: 20230113
  Serious: Yes (Hospitalization, Other)
  Sender: FDA-Public Use
  Company Number: BH-Oxford Pharmaceuticals, LLC-2133615

PATIENT
  Age: 31 Year
  Sex: Male
  Weight: 75 kg

DRUGS (3)
  1. CAPTOPRIL [Suspect]
     Active Substance: CAPTOPRIL
     Indication: Hypertension
  2. AMLODIPINE BESYLATE [Suspect]
     Active Substance: AMLODIPINE BESYLATE
  3. DICLOFENAC [Suspect]
     Active Substance: DICLOFENAC
     Route: 030

REACTIONS (1)
  - Anaphylactic shock [Recovered/Resolved]
